FAERS Safety Report 7531343-0 (Version None)
Quarter: 2011Q2

REPORT INFORMATION
  Report Type: 
  Country: None (occurrence: None)
  Receive Date: 20110608
  Receipt Date: 20110525
  Transmission Date: 20111010
  Serious: Yes (Other)
  Sender: FDA-Public Use
  Company Number: PHHY2011US36840

PATIENT
  Sex: Female
  Weight: 81 kg

DRUGS (2)
  1. RECLAST [Suspect]
     Indication: OSTEOPOROSIS
     Dosage: 5 MG/100 ML
     Route: 042
     Dates: start: 20110428
  2. SYNTHROID [Concomitant]
     Indication: HYPOTHYROIDISM

REACTIONS (10)
  - VOMITING [None]
  - NAUSEA [None]
  - NECK PAIN [None]
  - INFLUENZA LIKE ILLNESS [None]
  - TREMOR [None]
  - PYREXIA [None]
  - PAIN IN JAW [None]
  - TRISMUS [None]
  - APHAGIA [None]
  - THROAT TIGHTNESS [None]
